FAERS Safety Report 18391798 (Version 1)
Quarter: 2020Q4

REPORT INFORMATION
  Report Type: Spontaneous
  Country: GB (occurrence: GB)
  Receive Date: 20201016
  Receipt Date: 20201016
  Transmission Date: 20210114
  Serious: Yes (Other)
  Sender: FDA-Public Use
  Company Number: GB-EMCURE PHARMACEUTICALS LTD-2020-EPL-001581

PATIENT
  Sex: Female

DRUGS (1)
  1. INDOMETACIN [Suspect]
     Active Substance: INDOMETHACIN
     Indication: FOETAL CARDIAC DISORDER
     Dosage: 100 MILLIGRAM, TID

REACTIONS (3)
  - Oligohydramnios [Recovered/Resolved]
  - Maternal exposure timing unspecified [Recovered/Resolved]
  - Off label use [Unknown]
